FAERS Safety Report 21824954 (Version 1)
Quarter: 2023Q1

REPORT INFORMATION
  Report Type: Spontaneous
  Country: DK (occurrence: DK)
  Receive Date: 20230105
  Receipt Date: 20230105
  Transmission Date: 20230417
  Serious: Yes (Other)
  Sender: FDA-Public Use
  Company Number: None

PATIENT
  Sex: Female

DRUGS (7)
  1. METHOTREXATE [Suspect]
     Active Substance: METHOTREXATE
     Indication: Juvenile idiopathic arthritis
     Dosage: DOSE: UNKNOWN , STRENGTH: UNKNOWN
     Route: 065
     Dates: start: 2004, end: 2008
  2. METHOTREXATE [Suspect]
     Active Substance: METHOTREXATE
     Dosage: DOSE: INTERVAL UNKNOWN. DOSE DECREASED TO 15 MG ON 26-MAY-2021. PAUSED ON 12-JUL-2021. STRENGTH: UNK
     Route: 065
     Dates: start: 20210521, end: 20210824
  3. METHOTREXATE [Suspect]
     Active Substance: METHOTREXATE
     Dosage: DOSE: UNKNOWN , STRENGTH: UNKNOWN
     Route: 065
     Dates: start: 201111, end: 201111
  4. METHOTREXATE SODIUM [Suspect]
     Active Substance: METHOTREXATE SODIUM
     Indication: Juvenile idiopathic arthritis
     Dosage: DOSE: UNKNOWN. PAUSED FROM APR-2020-OCT-2020.; STRENGTH: 50 MG/ML
     Route: 065
     Dates: start: 202003, end: 20201103
  5. METHOTREXATE SODIUM [Suspect]
     Active Substance: METHOTREXATE SODIUM
     Dosage: DOSE: PAUSED IN AUG-2019, STRENGTH: 50 MG/ML
     Route: 065
     Dates: start: 201709, end: 20191204
  6. METHOTREXATE SODIUM [Suspect]
     Active Substance: METHOTREXATE SODIUM
     Dosage: DOSAGE: SLOWLY INCREASING BUT THE PATIENT WANTED TO DECREASE DOSE ON 22-MAY-2017. STRENGTH: 50 MG/ML
     Route: 065
     Dates: start: 20170410, end: 201707
  7. METHOTREXATE SODIUM [Suspect]
     Active Substance: METHOTREXATE SODIUM
     Dosage: STRENGTH: 50 MG/ML
     Route: 065
     Dates: start: 20210517, end: 20210521

REACTIONS (11)
  - Renal impairment [Unknown]
  - Fatigue [Unknown]
  - Heat stroke [Unknown]
  - Diarrhoea [Unknown]
  - Abdominal pain [Unknown]
  - Decreased appetite [Unknown]
  - Cough [Unknown]
  - Hepatic enzyme increased [Unknown]
  - Injection site discomfort [Unknown]
  - Vomiting [Unknown]
  - Nausea [Unknown]

NARRATIVE: CASE EVENT DATE: 20111101
